FAERS Safety Report 6095935-0 (Version None)
Quarter: 2009Q1

REPORT INFORMATION
  Report Type: 
  Country: None (occurrence: None)
  Receive Date: 20090227
  Receipt Date: 20080718
  Transmission Date: 20090719
  Serious: No
  Sender: FDA-Public Use
  Company Number: A0738460A

PATIENT
  Age: 50 Year
  Sex: Female

DRUGS (4)
  1. LAMICTAL [Suspect]
     Indication: DEPRESSION
     Dosage: 200MG PER DAY
     Route: 048
     Dates: start: 20080601, end: 20080717
  2. PHENTANYL [Concomitant]
  3. OXYCODONE [Concomitant]
  4. BACLOFEN [Concomitant]

REACTIONS (2)
  - RASH [None]
  - RASH PRURITIC [None]
